FAERS Safety Report 4877329-6 (Version None)
Quarter: 2006Q1

REPORT INFORMATION
  Report Type: 
  Country: None (occurrence: None)
  Receive Date: 20060106
  Receipt Date: 20051226
  Transmission Date: 20060701
  Serious: Yes (Death, Hospitalization)
  Sender: FDA-Public Use
  Company Number: JP-2005-023982

PATIENT
  Age: 78 Year
  Sex: Male

DRUGS (7)
  1. SOTALOL HCL [Suspect]
     Indication: VENTRICULAR TACHYCARDIA
     Dosage: SEE IMAGE, ORAL
     Route: 048
     Dates: start: 20040129, end: 20040219
  2. SOTALOL HCL [Suspect]
     Indication: VENTRICULAR TACHYCARDIA
     Dosage: SEE IMAGE, ORAL
     Route: 048
     Dates: start: 20040220, end: 20040225
  3. LASIX [Concomitant]
  4. COTRIM [Concomitant]
  5. TENORMIN [Concomitant]
  6. VERAPAMIL [Concomitant]
  7. PREDONINE [Concomitant]

REACTIONS (3)
  - BLOOD PRESSURE DECREASED [None]
  - BRADYCARDIA [None]
  - RESPIRATORY FAILURE [None]
